FAERS Safety Report 17560530 (Version 1)
Quarter: 2020Q1

REPORT INFORMATION
  Report Type: Spontaneous
  Country: NL (occurrence: NL)
  Receive Date: 20200319
  Receipt Date: 20200319
  Transmission Date: 20200409
  Serious: Yes (Other)
  Sender: FDA-Public Use
  Company Number: NL-AUROBINDO-AUR-APL-2020-014276

PATIENT
  Sex: Male
  Weight: 75 kg

DRUGS (2)
  1. VITAMINE D [Concomitant]
     Active Substance: CHOLECALCIFEROL
     Indication: PRODUCT USED FOR UNKNOWN INDICATION
     Dosage: 1 DOSAGE FORM, ONCE A DAY
     Route: 065
  2. OLMESARTAN MEDOXOMIL AUROBINDO FILM COATED TABLET 10 MG [Suspect]
     Active Substance: OLMESARTAN MEDOXOMIL
     Indication: HYPERTENSION
     Dosage: 10 MILLIGRAM, ONCE A DAY
     Route: 065
     Dates: start: 20200124, end: 20200221

REACTIONS (3)
  - Oedema mouth [Recovering/Resolving]
  - Hypertension [Recovering/Resolving]
  - Therapeutic response unexpected [Unknown]
